FAERS Safety Report 8836705 (Version 1)
Quarter: 2012Q4

REPORT INFORMATION
  Report Type: Spontaneous
  Country: US (occurrence: None)
  Receive Date: 20121010
  Receipt Date: 20121010
  Transmission Date: 20130627
  Serious: Yes (Death)
  Sender: FDA-Public Use
  Company Number: ADR-2012-01820

PATIENT
  Age: 82 Year
  Sex: Male

DRUGS (4)
  1. LIORESAL [Suspect]
     Indication: CANCER PAIN
  2. LIORESAL [Suspect]
  3. DILAUDID (HYDROMORPHONE) [Concomitant]
  4. BUUPIVACAINE [Concomitant]

REACTIONS (2)
  - Renal cell carcinoma [None]
  - Condition aggravated [None]
